FAERS Safety Report 9501087 (Version 2)
Quarter: 2013Q3

REPORT INFORMATION
  Report Type: Report from Study
  Country: BE (occurrence: BE)
  Receive Date: 20130905
  Receipt Date: 20130918
  Transmission Date: 20140515
  Serious: Yes (Other)
  Sender: FDA-Public Use
  Company Number: BE-ROCHE-1268090

PATIENT
  Age: 35 Year
  Sex: Male
  Weight: 83 kg

DRUGS (3)
  1. VEMURAFENIB [Suspect]
     Indication: MALIGNANT MELANOMA
     Route: 048
     Dates: start: 20130806, end: 20130827
  2. BLINDED GDC-0973 [Suspect]
     Indication: MALIGNANT MELANOMA
     Route: 048
     Dates: start: 20130806, end: 20130826
  3. DAFALGAN [Concomitant]
     Indication: PYREXIA
     Route: 048
     Dates: start: 20130826, end: 20130831

REACTIONS (1)
  - Drug reaction with eosinophilia and systemic symptoms [Recovered/Resolved]
